FAERS Safety Report 8871317 (Version 2)
Quarter: 2012Q4

REPORT INFORMATION
  Report Type: Report from Study
  Country: ES (occurrence: ES)
  Receive Date: 20121029
  Receipt Date: 20121227
  Transmission Date: 20130627
  Serious: Yes (Disabling, Other)
  Sender: FDA-Public Use
  Company Number: ES-ROCHE-1149268

PATIENT
  Age: 56 Year
  Sex: Female
  Weight: 45 kg

DRUGS (9)
  1. PERTUZUMAB [Suspect]
     Indication: PRODUCT USED FOR UNKNOWN INDICATION
     Dosage: PERTUZUMAB started at a loading dose of 840 mg for cycle 1 and a dose of 420 mg for cycles 2-4
     Route: 042
     Dates: start: 20120720
  2. PERTUZUMAB [Suspect]
     Dosage: PERTUZUMAB started at a loading dose of 840 mg for cycle 1 and a dose of 420 mg for cycles 2-4
     Route: 042
     Dates: start: 20120809
  3. PERTUZUMAB [Suspect]
     Dosage: PERTUZUMAB started at a loading dose of 840 mg for cycle 1 and a dose of 420 mg for cycles 2-4
     Route: 042
     Dates: start: 20120830
  4. PERTUZUMAB [Suspect]
     Dosage: PERTUZUMAB started at a loading dose of 840 mg for cycle 1 and a dose of 420 mg for cycles 2-4
     Route: 042
     Dates: start: 20120920
  5. DULOXETINE [Concomitant]
     Indication: DEPRESSION
     Route: 048
     Dates: start: 20120717
  6. LORMETAZEPAM [Concomitant]
     Indication: ANXIETY
     Route: 048
     Dates: start: 20090914
  7. POTASSIUM CLORAZEPATE [Concomitant]
     Indication: ANXIETY
     Route: 048
     Dates: start: 20090914
  8. LOPERAMIDE [Concomitant]
     Indication: DIARRHOEA
     Route: 048
     Dates: start: 20090924
  9. OMEPRAZOLE [Concomitant]
     Indication: ULCER
     Route: 048
     Dates: start: 20090424

REACTIONS (4)
  - Disease progression [Not Recovered/Not Resolved]
  - Asthenia [Recovering/Resolving]
  - Diarrhoea [Recovering/Resolving]
  - Decreased appetite [Recovering/Resolving]
